FAERS Safety Report 9687513 (Version 1)
Quarter: 2013Q4

REPORT INFORMATION
  Report Type: Spontaneous
  Country: DE (occurrence: DE)
  Receive Date: 20131114
  Receipt Date: 20131114
  Transmission Date: 20140711
  Serious: Yes (Hospitalization)
  Sender: FDA-Public Use
  Company Number: DE-JNJFOC-20131101617

PATIENT
  Age: 75 Year
  Sex: Female

DRUGS (4)
  1. RISPERDAL [Suspect]
     Indication: DELUSION
     Route: 048
     Dates: start: 20130509, end: 20130522
  2. L-THYROXIN [Concomitant]
     Route: 048
  3. MIRTAZAPIN [Concomitant]
     Route: 048
     Dates: start: 20130510, end: 20130513
  4. MIRTAZAPIN [Concomitant]
     Route: 048
     Dates: start: 20130514

REACTIONS (3)
  - Cerebral atrophy [Unknown]
  - Skin reaction [Recovered/Resolved]
  - Drug intolerance [Unknown]
